FAERS Safety Report 24162578 (Version 1)
Quarter: 2024Q3

REPORT INFORMATION
  Report Type: Spontaneous
  Country: GB (occurrence: GB)
  Receive Date: 20240801
  Receipt Date: 20240801
  Transmission Date: 20241017
  Serious: Yes (Hospitalization)
  Sender: STEMLINE THERAPEUTICS
  Company Number: GB-Stemline Therapeutics, Inc.-2024ST004548

PATIENT
  Age: 69 Year
  Sex: Female

DRUGS (1)
  1. ORSERDU [Suspect]
     Active Substance: ELACESTRANT
     Indication: Product used for unknown indication
     Dosage: 345MG ELACESTRANT 2ND CYCLE

REACTIONS (3)
  - Concomitant disease aggravated [Unknown]
  - Blood cholesterol increased [Unknown]
  - Fatigue [Unknown]
